FAERS Safety Report 14762480 (Version 1)
Quarter: 2018Q2

REPORT INFORMATION
  Report Type: Spontaneous
  Country: CA (occurrence: CA)
  Receive Date: 20180416
  Receipt Date: 20180416
  Transmission Date: 20180711
  Serious: Yes (Other)
  Sender: FDA-Public Use
  Company Number: CA-ABBVIE-18K-028-2321379-00

PATIENT
  Age: 46 Year
  Sex: Male

DRUGS (18)
  1. HUMIRA [Suspect]
     Active Substance: ADALIMUMAB
     Indication: PRODUCT USED FOR UNKNOWN INDICATION
     Route: 058
     Dates: start: 2016, end: 20180311
  2. PMS ZOPICLONE [Concomitant]
     Indication: INSOMNIA
     Dosage: ONE HALF TO ONE TAB DAILY
     Route: 048
  3. PMS-LOPERAMIDE [Concomitant]
     Indication: DIARRHOEA
     Dosage: BID AS NEEDED
  4. ACT BUPROPION XL [Concomitant]
     Indication: PRODUCT USED FOR UNKNOWN INDICATION
  5. VIAGRA [Concomitant]
     Active Substance: SILDENAFIL CITRATE
     Indication: PRODUCT USED FOR UNKNOWN INDICATION
     Dosage: ONE HALF TO ONE TABLET
     Route: 048
  6. BLOK [Concomitant]
     Indication: PRODUCT USED FOR UNKNOWN INDICATION
     Dosage: ONE FOURTH OF BOTTLE DAILY AS NEEDED
  7. ACT CIPROFLOXACIN [Concomitant]
     Active Substance: CIPROFLOXACIN
     Indication: CELLULITIS
     Route: 048
  8. PMS CLONAZEPAM [Concomitant]
     Indication: PRODUCT USED FOR UNKNOWN INDICATION
     Dosage: HALF TO 1 TAB DAILY AS NEEDED
     Route: 048
  9. METHOTREXATE. [Suspect]
     Active Substance: METHOTREXATE
     Indication: PRODUCT USED FOR UNKNOWN INDICATION
     Route: 065
     Dates: start: 20160329, end: 20161028
  10. COLESTID [Concomitant]
     Active Substance: COLESTIPOL HYDROCHLORIDE
     Indication: PRODUCT USED FOR UNKNOWN INDICATION
  11. PMS-HYDROMORPHONE [Concomitant]
     Active Substance: HYDROMORPHONE HYDROCHLORIDE
     Indication: PAIN
     Dosage: EVERY 3 HOURS AS NEEDED
  12. VITAMIN B12 [Concomitant]
     Active Substance: CYANOCOBALAMIN
     Indication: PRODUCT USED FOR UNKNOWN INDICATION
     Route: 048
  13. METRONIDAZOLE. [Concomitant]
     Active Substance: METRONIDAZOLE
     Indication: CELLULITIS
     Route: 048
  14. MINT RISPERIDON [Concomitant]
     Indication: PRODUCT USED FOR UNKNOWN INDICATION
  15. PREDNISONE. [Concomitant]
     Active Substance: PREDNISONE
     Indication: PRODUCT USED FOR UNKNOWN INDICATION
     Dates: start: 20160325, end: 20160518
  16. ROGAINE [Concomitant]
     Active Substance: MINOXIDIL
     Indication: PRODUCT USED FOR UNKNOWN INDICATION
  17. ACTR VENLAFAXINE XR [Concomitant]
     Indication: PRODUCT USED FOR UNKNOWN INDICATION
  18. PMS CELECOXIB [Concomitant]
     Indication: PRODUCT USED FOR UNKNOWN INDICATION

REACTIONS (5)
  - Intestinal fistula [Unknown]
  - Drug ineffective [Unknown]
  - Drug effect incomplete [Not Recovered/Not Resolved]
  - Abscess intestinal [Unknown]
  - Intestinal stenosis [Unknown]

NARRATIVE: CASE EVENT DATE: 2016
